FAERS Safety Report 15506131 (Version 1)
Quarter: 2018Q4

REPORT INFORMATION
  Report Type: Spontaneous
  Country: US (occurrence: US)
  Receive Date: 20181016
  Receipt Date: 20181016
  Transmission Date: 20190205
  Serious: No
  Sender: FDA-Public Use
  Company Number: US-MELINTA THERAPEUTICS, INC.-MTP201809-000075

PATIENT
  Sex: Male

DRUGS (1)
  1. BAXDELA [Suspect]
     Active Substance: DELAFLOXACIN MEGLUMINE
     Indication: BACTERIAL INFECTION
     Dosage: 450 MG
     Route: 048
     Dates: start: 20180902, end: 20180902

REACTIONS (3)
  - Somnolence [Unknown]
  - Dyspnoea [Unknown]
  - Haemoglobin decreased [Unknown]
